FAERS Safety Report 7357152-3 (Version None)
Quarter: 2011Q1

REPORT INFORMATION
  Report Type: 
  Country: None (occurrence: None)
  Receive Date: 20110311
  Receipt Date: 20110311
  Transmission Date: 20110831
  Serious: Yes (Other)
  Sender: FDA-Public Use
  Company Number: None

PATIENT
  Sex: Female

DRUGS (1)
  1. ENBREL [Suspect]
     Indication: RHEUMATOID ARTHRITIS
     Dosage: 50MG WEEKLY SUBCUTANEOUS INJ
     Route: 058
     Dates: start: 20101101

REACTIONS (3)
  - RASH [None]
  - PYREXIA [None]
  - MALAISE [None]
